FAERS Safety Report 4394334-7 (Version None)
Quarter: 2004Q3

REPORT INFORMATION
  Report Type: 
  Country: None (occurrence: None)
  Receive Date: 20040706
  Receipt Date: 20040622
  Transmission Date: 20050211
  Serious: Yes (Hospitalization)
  Sender: FDA-Public Use
  Company Number: 2004220124US

PATIENT
  Age: 46 Year
  Sex: Female

DRUGS (8)
  1. DELTASONE [Suspect]
     Indication: RHEUMATOID ARTHRITIS
     Dosage: 5 MG, QD
     Dates: start: 20021211
  2. METHOTREXATE [Suspect]
     Indication: RHEUMATOID ARTHRITIS
     Dosage: 17.5 MG, WEEKLY
     Dates: start: 20030103
  3. ENBREL [Suspect]
     Indication: RHEUMATOID ARTHRITIS
     Dosage: 25 MG, CYCLIC, TWICE A WEEK
     Dates: start: 20030101, end: 20030401
  4. VALSARTAN (VALSARTAN) [Concomitant]
  5. HYDROCHLOROTHIAZIDE [Concomitant]
  6. TRIAMTERENE AND HYDROCHLOROTHIAZIDE [Concomitant]
  7. ALPRAZOLAM [Concomitant]
  8. NORTRIPTYLINE HCL [Concomitant]

REACTIONS (1)
  - COLON CANCER [None]
